FAERS Safety Report 6207610-X (Version None)
Quarter: 2009Q2

REPORT INFORMATION
  Report Type: 
  Country: None (occurrence: None)
  Receive Date: 20090526
  Receipt Date: 20090515
  Transmission Date: 20091009
  Serious: Yes (Hospitalization)
  Sender: FDA-Public Use
  Company Number: 2009-00511

PATIENT
  Age: 75 Year
  Sex: Male
  Weight: 89 kg

DRUGS (2)
  1. VELCADE [Suspect]
     Indication: MULTIPLE MYELOMA
     Dates: start: 20081009, end: 20081216
  2. CNT0328(CNT0328) VIAL [Suspect]
     Indication: MULTIPLE MYELOMA
     Dates: end: 20081216

REACTIONS (6)
  - CARDIAC FAILURE [None]
  - DERMATITIS EXFOLIATIVE [None]
  - ECZEMA [None]
  - FALL [None]
  - HYPOTENSION [None]
  - PERIORBITAL OEDEMA [None]
